FAERS Safety Report 4917802-5 (Version None)
Quarter: 2006Q1

REPORT INFORMATION
  Report Type: 
  Country: None (occurrence: None)
  Receive Date: 20060221
  Receipt Date: 20060110
  Transmission Date: 20060701
  Serious: Yes (Death, Other)
  Sender: FDA-Public Use
  Company Number: ES-NOVOPROD-249924

PATIENT
  Age: 67 Year
  Sex: Male
  Weight: 64 kg

DRUGS (4)
  1. BLINDED NOVOSEVEN VS. PLACEBO [Suspect]
     Indication: UPPER GASTROINTESTINAL HAEMORRHAGE
     Dosage: 5 DOSES
     Route: 042
     Dates: start: 20060102, end: 20060103
  2. NADOLOL [Concomitant]
     Dosage: 120 MG, QD
     Route: 048
     Dates: start: 20060108
  3. PANTOPRAZOLE [Concomitant]
     Dosage: 40 MG, QD
     Route: 048
     Dates: start: 20051231
  4. TERLIPRESSIN [Concomitant]

REACTIONS (4)
  - HEPATIC NEOPLASM MALIGNANT [None]
  - OESOPHAGEAL VARICES HAEMORRHAGE [None]
  - PLATELET COUNT DECREASED [None]
  - PORTAL VEIN THROMBOSIS [None]
